FAERS Safety Report 10040626 (Version 1)
Quarter: 2014Q1

REPORT INFORMATION
  Report Type: Spontaneous
  Country: US (occurrence: None)
  Receive Date: 20140326
  Receipt Date: 20140326
  Transmission Date: 20141002
  Serious: Yes (Other)
  Sender: FDA-Public Use
  Company Number: None

PATIENT
  Age: 72 Year
  Sex: Female
  Weight: 56.7 kg

DRUGS (6)
  1. FAMILY DOLLAR MEDICATED CHEST RUB [Suspect]
     Indication: NASOPHARYNGITIS
     Dosage: 1 JAR?(ON FACE AROUND) NOSE?
  2. TOPROL XL [Concomitant]
  3. SYNTHROID [Concomitant]
  4. ARIMIDEX [Concomitant]
  5. CLARINEX [Concomitant]
  6. CODEINE SULFATE [Concomitant]

REACTIONS (3)
  - Swelling [None]
  - Nasal disorder [None]
  - Dyspnoea [None]
